FAERS Safety Report 11920920 (Version 1)
Quarter: 2016Q1

REPORT INFORMATION
  Report Type: Spontaneous
  Country: US (occurrence: US)
  Receive Date: 20160115
  Receipt Date: 20160115
  Transmission Date: 20160526
  Serious: No
  Sender: FDA-Public Use
  Company Number: US-ASTELLAS-2015US040756

PATIENT
  Age: 85 Year
  Sex: Male

DRUGS (2)
  1. MYRBETRIQ [Suspect]
     Active Substance: MIRABEGRON
     Route: 065
     Dates: start: 20151017, end: 20151030
  2. MYRBETRIQ [Suspect]
     Active Substance: MIRABEGRON
     Indication: HYPOTENSION
     Route: 065
     Dates: start: 20151015, end: 20151016

REACTIONS (2)
  - Off label use [Unknown]
  - Intraocular pressure increased [Recovered/Resolved]

NARRATIVE: CASE EVENT DATE: 20151015
